FAERS Safety Report 9775749 (Version 1)
Quarter: 2013Q4

REPORT INFORMATION
  Report Type: Spontaneous
  Country: US (occurrence: US)
  Receive Date: 20131220
  Receipt Date: 20131220
  Transmission Date: 20140711
  Serious: Yes (Hospitalization)
  Sender: FDA-Public Use
  Company Number: US-BRISTOL-MYERS SQUIBB COMPANY-19916188

PATIENT
  Age: 66 Year
  Sex: Female
  Weight: 113.38 kg

DRUGS (1)
  1. ORENCIA [Suspect]
     Indication: RHEUMATOID ARTHRITIS
     Dosage: LAST INFUSION:NOV2013
     Route: 042

REACTIONS (4)
  - Arthropathy [Unknown]
  - Chills [Unknown]
  - Feeling cold [Unknown]
  - Drug dose omission [Unknown]
